FAERS Safety Report 14252598 (Version 1)
Quarter: 2017Q4

REPORT INFORMATION
  Report Type: Spontaneous
  Country: US (occurrence: US)
  Receive Date: 20171205
  Receipt Date: 20171205
  Transmission Date: 20180321
  Serious: Yes (Other)
  Sender: FDA-Public Use
  Company Number: PHEH2017US038824

PATIENT
  Sex: Male

DRUGS (4)
  1. AMIODARONE HYDROCHLORIDE. [Suspect]
     Active Substance: AMIODARONE HYDROCHLORIDE
     Indication: ATRIAL FIBRILLATION
     Route: 048
     Dates: start: 201603
  2. AMIODARONE ZYDUS [Suspect]
     Active Substance: AMIODARONE
     Indication: ATRIAL FIBRILLATION
     Route: 065
  3. AMIODARONE TEVA [Suspect]
     Active Substance: AMIODARONE
     Indication: ATRIAL FIBRILLATION
     Route: 065
  4. AMIODARONE HYDROCHLORIDE. [Suspect]
     Active Substance: AMIODARONE HYDROCHLORIDE
     Indication: ATRIAL FIBRILLATION
     Route: 065

REACTIONS (15)
  - Renal impairment [Unknown]
  - Visual impairment [Unknown]
  - Nausea [Unknown]
  - Pain [Unknown]
  - Abdominal pain [Unknown]
  - Rash [Unknown]
  - Renal failure [Unknown]
  - Optic ischaemic neuropathy [Unknown]
  - Gait disturbance [Unknown]
  - Product use in unapproved indication [Unknown]
  - Asthenia [Unknown]
  - Gastrointestinal haemorrhage [Unknown]
  - Blister [Unknown]
  - Blindness [Unknown]
  - Myalgia [Unknown]

NARRATIVE: CASE EVENT DATE: 201606
